FAERS Safety Report 9917470 (Version 4)
Quarter: 2014Q2

REPORT INFORMATION
  Report Type: Spontaneous
  Country: US (occurrence: US)
  Receive Date: 20140221
  Receipt Date: 20140411
  Transmission Date: 20141212
  Serious: No
  Sender: FDA-Public Use
  Company Number: US-PFIZER INC-2014048310

PATIENT
  Sex: Female

DRUGS (2)
  1. EXEMESTANE [Suspect]
     Dosage: 25 MG, UNK
     Dates: start: 201310
  2. EXEMESTANE [Suspect]
     Dosage: 25 MG, UNK

REACTIONS (2)
  - Drug ineffective [Unknown]
  - Product quality issue [Unknown]
